FAERS Safety Report 4895789-1 (Version None)
Quarter: 2006Q1

REPORT INFORMATION
  Report Type: 
  Country: None (occurrence: None)
  Receive Date: 20060124
  Receipt Date: 20060112
  Transmission Date: 20060701
  Serious: Yes (Hospitalization, Other)
  Sender: FDA-Public Use
  Company Number: 2006BH000683

PATIENT
  Age: 46 Year
  Sex: Male

DRUGS (1)
  1. IMMUNE GLOBULIN INTRAVENOUS (HUMAN) [Suspect]
     Indication: THROMBOCYTOPENIC PURPURA
     Dosage: 0.4 G/KG;ONCE;IV
     Route: 042

REACTIONS (6)
  - CORONARY ARTERY OCCLUSION [None]
  - MYOCARDIAL INFARCTION [None]
  - PLATELET COUNT DECREASED [None]
  - SPLENECTOMY [None]
  - THERAPY NON-RESPONDER [None]
  - VENTRICULAR DYSFUNCTION [None]
